FAERS Safety Report 24413380 (Version 1)
Quarter: 2024Q4

REPORT INFORMATION
  Report Type: Spontaneous
  Country: SI (occurrence: SI)
  Receive Date: 20241008
  Receipt Date: 20241008
  Transmission Date: 20250114
  Serious: Yes (Death)
  Sender: NOVARTIS
  Company Number: SI-002147023-NVSC2024SI198019

PATIENT
  Sex: Male

DRUGS (1)
  1. ENTRESTO [Suspect]
     Active Substance: SACUBITRIL\VALSARTAN
     Indication: Heart failure with reduced ejection fraction
     Dosage: 24.26 MG, BID
     Route: 048

REACTIONS (1)
  - Death [Fatal]
